FAERS Safety Report 11373407 (Version 1)
Quarter: 2015Q3

REPORT INFORMATION
  Report Type: Spontaneous
  Country: US (occurrence: US)
  Receive Date: 20150811
  Receipt Date: 20150811
  Transmission Date: 20151125
  Serious: No
  Sender: FDA-Public Use
  Company Number: US-ELI_LILLY_AND_COMPANY-US201211004781

PATIENT
  Sex: Female

DRUGS (1)
  1. ADCIRCA [Suspect]
     Active Substance: TADALAFIL
     Indication: PULMONARY HYPERTENSION
     Dosage: 40 MG, QD
     Dates: start: 20121108, end: 20121109

REACTIONS (8)
  - Oropharyngeal pain [Unknown]
  - Dyspnoea [Unknown]
  - Pain [Unknown]
  - Swelling face [Unknown]
  - Headache [Unknown]
  - Pelvic discomfort [Unknown]
  - Peripheral swelling [Unknown]
  - Productive cough [Unknown]
